FAERS Safety Report 22104641 (Version 2)
Quarter: 2023Q1

REPORT INFORMATION
  Report Type: Report from Study
  Country: JP (occurrence: JP)
  Receive Date: 20230316
  Receipt Date: 20230330
  Transmission Date: 20230418
  Serious: Yes (Death)
  Sender: FDA-Public Use
  Company Number: JP-PFIZER INC-2019516152

PATIENT
  Age: 78 Year
  Sex: Female
  Weight: 47.9 kg

DRUGS (2)
  1. LORBRENA [Suspect]
     Active Substance: LORLATINIB
     Indication: Non-small cell lung cancer
     Dosage: 100 MG, DAILY
     Dates: start: 20191019, end: 20191110
  2. LORBRENA [Suspect]
     Active Substance: LORLATINIB
     Dosage: 75 MG, DAILY
     Dates: start: 20191111, end: 20200227

REACTIONS (2)
  - Neoplasm progression [Fatal]
  - Personality change [Recovered/Resolved]

NARRATIVE: CASE EVENT DATE: 20191030
